FAERS Safety Report 4741472-2 (Version None)
Quarter: 2005Q3

REPORT INFORMATION
  Report Type: 
  Country: None (occurrence: None)
  Receive Date: 20050808
  Receipt Date: 20050725
  Transmission Date: 20060218
  Serious: Yes (Death)
  Sender: FDA-Public Use
  Company Number: 207134

PATIENT
  Age: 53 Year
  Sex: Female

DRUGS (16)
  1. MABTHERA(RITUXIMAB) CONC FOR  SOLUTION FOR INFUSION [Suspect]
     Indication: NON-HODGKIN'S LYMPHOMA
     Dosage: Q3W, INTRAVENOUS
     Route: 042
     Dates: start: 20030317
  2. CYCLOPHOSPHAMIDE [Suspect]
     Indication: NON-HODGKIN'S LYMPHOMA
     Dosage: INTRAVENOUS
     Route: 042
     Dates: start: 20030317
  3. DOXORUBICIN HCL [Suspect]
     Dosage: INTRAVENOUS
     Route: 042
  4. VINCRISTINE [Suspect]
     Indication: NON-HODGKIN'S LYMPHOMA
     Dosage: INTRAVENOUS
     Route: 042
  5. PREDNISONE [Suspect]
     Indication: NON-HODGKIN'S LYMPHOMA
     Dosage: ORAL
     Route: 048
  6. ETOPOSIDE [Suspect]
     Indication: NON-HODGKIN'S LYMPHOMA
     Dosage: INTRAVENOUS
     Route: 042
  7. CYTARABINE [Suspect]
     Indication: NON-HODGKIN'S LYMPHOMA
     Dosage: INTRAVENOUS
     Route: 042
  8. CISPLATIN [Suspect]
     Indication: NON-HODGKIN'S LYMPHOMA
     Dosage: INTRAVENOUS
     Route: 042
  9. METHYLPREDNISOLONE [Suspect]
     Indication: NON-HODGKIN'S LYMPHOMA
     Dosage: INTRAVENOUS
     Route: 042
  10. MORPHINE [Concomitant]
  11. ORAMORPH SR [Concomitant]
  12. ZOPICLONE (ZOPICLONE) [Concomitant]
  13. FENTANYL PATCH (FENTANYL CITRATE) [Concomitant]
  14. ENOXAPARIN SODIUM [Concomitant]
  15. DEXAMETHASONE [Concomitant]
  16. LANSOPRAZOLE [Concomitant]

REACTIONS (1)
  - NEUTROPENIC SEPSIS [None]
